FAERS Safety Report 12869352 (Version 4)
Quarter: 2020Q2

REPORT INFORMATION
  Report Type: Report from Study
  Country: CN (occurrence: CN)
  Receive Date: 20161021
  Receipt Date: 20200616
  Transmission Date: 20200713
  Serious: Yes (Death, Hospitalization)
  Sender: FDA-Public Use
  Company Number: PHHO2016CN014997

PATIENT
  Age: 31 Year
  Sex: Male
  Weight: 60 kg

DRUGS (1)
  1. EVEROLIMUS. [Suspect]
     Active Substance: EVEROLIMUS
     Indication: PANCREATIC NEUROENDOCRINE TUMOUR
     Dosage: 7.5 MG, QD
     Route: 048
     Dates: start: 20160829, end: 20161001

REACTIONS (3)
  - Pneumonia [Fatal]
  - Renal failure [Fatal]
  - Hypoglycaemic encephalopathy [Fatal]

NARRATIVE: CASE EVENT DATE: 20161008
